FAERS Safety Report 14174092 (Version 13)
Quarter: 2019Q1

REPORT INFORMATION
  Report Type: Report from Study
  Country: CA (occurrence: CA)
  Receive Date: 20171109
  Receipt Date: 20190327
  Transmission Date: 20190417
  Serious: Yes (Life-Threatening, Hospitalization, Other)
  Sender: FDA-Public Use
  Company Number: CA-BRISTOL-MYERS SQUIBB COMPANY-BMS-2017-054154

PATIENT
  Age: 63 Year
  Sex: Female

DRUGS (2)
  1. ABATACEPT [Suspect]
     Active Substance: ABATACEPT
     Indication: RHEUMATOID ARTHRITIS
     Dosage: 1000 MG, Q4WK
     Route: 042
     Dates: start: 20160706
  2. METHOTREXATE. [Suspect]
     Active Substance: METHOTREXATE
     Indication: PRODUCT USED FOR UNKNOWN INDICATION
     Dosage: UNK
     Route: 065

REACTIONS (27)
  - Loss of consciousness [Recovered/Resolved]
  - Fall [Unknown]
  - Nausea [Unknown]
  - Wound [Unknown]
  - Depression [Unknown]
  - Somnolence [Unknown]
  - Diabetes mellitus [Unknown]
  - Overdose [Unknown]
  - Arthralgia [Unknown]
  - Pain in extremity [Unknown]
  - Splenomegaly [Unknown]
  - Blood pressure decreased [Recovered/Resolved]
  - Blood iron decreased [Unknown]
  - Musculoskeletal pain [Unknown]
  - Haemorrhage [Unknown]
  - Hepatic cirrhosis [Unknown]
  - Sleep apnoea syndrome [Unknown]
  - Muscle spasms [Unknown]
  - Productive cough [Unknown]
  - Pneumonia [Unknown]
  - Mastitis [Recovering/Resolving]
  - General physical health deterioration [Unknown]
  - Bronchitis [Recovering/Resolving]
  - Fatigue [Unknown]
  - Ecchymosis [Unknown]
  - Anger [Unknown]
  - Arthropathy [Unknown]

NARRATIVE: CASE EVENT DATE: 20171002
